FAERS Safety Report 12948484 (Version 1)
Quarter: 2016Q4

REPORT INFORMATION
  Report Type: Other
  Country: GB (occurrence: IT)
  Receive Date: 20161117
  Receipt Date: 20161117
  Transmission Date: 20170207
  Serious: Yes (Other)
  Sender: FDA-Public Use
  Company Number: IT-CLARIS PHARMASERVICES-1059647

PATIENT
  Age: 24 Year
  Sex: Male

DRUGS (2)
  1. HALOPERIDOL. [Suspect]
     Active Substance: HALOPERIDOL
     Indication: THINKING ABNORMAL
     Route: 030
  2. VALPROATE [Concomitant]
     Active Substance: VALPROIC ACID

REACTIONS (4)
  - Chills [Unknown]
  - Malaise [Unknown]
  - Hypothermia [Unknown]
  - Weight decreased [Unknown]
